FAERS Safety Report 10792446 (Version 1)
Quarter: 2015Q1

REPORT INFORMATION
  Report Type: Spontaneous
  Country: CN (occurrence: None)
  Receive Date: 20150211
  Receipt Date: 20150211
  Transmission Date: 20150721
  Serious: Yes (Death)
  Sender: FDA-Public Use
  Company Number: FK201500637

PATIENT
  Age: 33 Year
  Sex: Male

DRUGS (1)
  1. HALOPERIDOL INJECTION [Suspect]
     Active Substance: HALOPERIDOL
     Indication: SCHIZOPHRENIA, PARANOID TYPE
     Dosage: 1 DOSE AT 5 PM
     Route: 030

REACTIONS (24)
  - Pallor [None]
  - Trismus [None]
  - Tachycardia [None]
  - Brain oedema [None]
  - Loss of consciousness [None]
  - Rales [None]
  - Neuroleptic malignant syndrome [None]
  - Seizure [None]
  - Pulmonary oedema [None]
  - Muscle rigidity [None]
  - Multi-organ disorder [None]
  - Initial insomnia [None]
  - Pupils unequal [None]
  - Blood pressure fluctuation [None]
  - Gastritis [None]
  - Ventricular extrasystoles [None]
  - Tachypnoea [None]
  - Foaming at mouth [None]
  - Screaming [None]
  - Unresponsive to stimuli [None]
  - Respiratory rate increased [None]
  - Wolff-Parkinson-White syndrome [None]
  - Leukocytosis [None]
  - Cardiomyopathy [None]
